FAERS Safety Report 6298667-9 (Version None)
Quarter: 2009Q3

REPORT INFORMATION
  Report Type: 
  Country: None (occurrence: None)
  Receive Date: 20090804
  Receipt Date: 20090720
  Transmission Date: 20100115
  Serious: Yes (Other)
  Sender: FDA-Public Use
  Company Number: 2009PV038663

PATIENT
  Age: 68 Year
  Sex: Female
  Weight: 113.3993 kg

DRUGS (4)
  1. SYMLIN [Suspect]
     Indication: TYPE 2 DIABETES MELLITUS
     Dosage: 120 MCG; TID; SC, 300 MCG; TID; SC
     Route: 058
     Dates: start: 20080601, end: 20090101
  2. SYMLIN [Suspect]
     Indication: TYPE 2 DIABETES MELLITUS
     Dosage: 120 MCG; TID; SC, 300 MCG; TID; SC
     Route: 058
     Dates: start: 20090601
  3. APIDRA [Concomitant]
  4. LEVEMIR [Concomitant]

REACTIONS (6)
  - BLOOD GLUCOSE DECREASED [None]
  - BREAST CANCER [None]
  - NAUSEA [None]
  - STAPHYLOCOCCAL INFECTION [None]
  - VOMITING [None]
  - WEIGHT DECREASED [None]
